FAERS Safety Report 25143131 (Version 1)
Quarter: 2025Q2

REPORT INFORMATION
  Report Type: Spontaneous
  Country: CN (occurrence: CN)
  Receive Date: 20250401
  Receipt Date: 20250401
  Transmission Date: 20250717
  Serious: Yes (Hospitalization, Other)
  Sender: GLAXOSMITHKLINE
  Company Number: CN-GSK-CN2025GSK036387

PATIENT

DRUGS (6)
  1. DOLUTEGRAVIR [Suspect]
     Active Substance: DOLUTEGRAVIR
     Indication: HIV infection
     Dates: start: 2023
  2. DOLUTEGRAVIR [Suspect]
     Active Substance: DOLUTEGRAVIR
     Indication: Acquired immunodeficiency syndrome
  3. LAMIVUDINE [Suspect]
     Active Substance: LAMIVUDINE
     Indication: HIV infection
     Dates: start: 2023
  4. LAMIVUDINE [Suspect]
     Active Substance: LAMIVUDINE
     Indication: Acquired immunodeficiency syndrome
  5. AMPHOTERICIN B DEOXYCHOLATE [Concomitant]
     Active Substance: AMPHOTERICIN B DEOXYCHOLATE
     Indication: Penicillium infection
     Dosage: 25 MG, 1D
     Route: 042
     Dates: start: 2023
  6. ITRACONAZOLE [Concomitant]
     Active Substance: ITRACONAZOLE
     Indication: Penicillium infection
     Dosage: 200 MG, BID
     Route: 048
     Dates: start: 2023, end: 202312

REACTIONS (5)
  - Paraplegia [Recovering/Resolving]
  - Meningitis fungal [Unknown]
  - Immune reconstitution inflammatory syndrome [Unknown]
  - Spinal cord abscess [Recovering/Resolving]
  - Spinal cord injury [Recovering/Resolving]
